FAERS Safety Report 25081678 (Version 1)
Quarter: 2025Q1

REPORT INFORMATION
  Report Type: Spontaneous
  Country: GB (occurrence: GB)
  Receive Date: 20250316
  Receipt Date: 20250316
  Transmission Date: 20250408
  Serious: Yes (Other)
  Sender: SANDOZ
  Company Number: GB-ASTRAZENECA-202503GBR004326GB

PATIENT
  Sex: Female

DRUGS (4)
  1. FULVESTRANT [Suspect]
     Active Substance: FULVESTRANT
     Indication: Breast cancer metastatic
     Route: 065
     Dates: start: 202311
  2. Adcal [Concomitant]
     Indication: Product used for unknown indication
     Route: 065
  3. DENOSUMAB [Concomitant]
     Active Substance: DENOSUMAB
     Indication: Product used for unknown indication
     Dosage: 120 MILLIGRAM, QIW
     Route: 065
  4. PREGABALIN [Concomitant]
     Active Substance: PREGABALIN
     Indication: Product used for unknown indication
     Dosage: 50 MILLIGRAM, BID
     Route: 065

REACTIONS (1)
  - Malignant neoplasm progression [Unknown]
